FAERS Safety Report 6435746-7 (Version None)
Quarter: 2009Q4

REPORT INFORMATION
  Report Type: 
  Country: None (occurrence: None)
  Receive Date: 20091111
  Receipt Date: 20091105
  Transmission Date: 20100525
  Serious: Yes (Death, Hospitalization)
  Sender: FDA-Public Use
  Company Number: US-CELGENEUS-163-21880-09051760

PATIENT
  Sex: Male
  Weight: 81.72 kg

DRUGS (22)
  1. REVLIMID [Suspect]
     Route: 048
     Dates: start: 20090514, end: 20090524
  2. GEMCITABINE [Suspect]
     Route: 051
     Dates: start: 20090514, end: 20090521
  3. DURAGESIC-100 [Concomitant]
     Indication: PAIN
     Route: 062
     Dates: start: 20090525
  4. DURAGESIC-100 [Concomitant]
     Route: 062
     Dates: start: 20090501
  5. DILAUDID [Concomitant]
     Indication: PAIN
     Dosage: 2-4 MG
     Route: 051
     Dates: start: 20090525
  6. DILAUDID [Concomitant]
     Dosage: 4-8 MG
     Route: 051
     Dates: start: 20090101
  7. DILAUDID [Concomitant]
     Dosage: 5-10ML
     Route: 048
     Dates: start: 20090501
  8. METFORMIN HCL [Concomitant]
     Route: 048
     Dates: start: 20070101
  9. METFORMIN HCL [Concomitant]
     Route: 048
     Dates: start: 20090501
  10. OXYCONTIN [Concomitant]
     Indication: DRUG USE FOR UNKNOWN INDICATION
     Route: 048
     Dates: start: 20090514
  11. LISINOPRIL [Concomitant]
     Indication: DRUG USE FOR UNKNOWN INDICATION
     Route: 048
     Dates: start: 20050101
  12. LOVASTATIN [Concomitant]
     Indication: DRUG USE FOR UNKNOWN INDICATION
     Route: 065
  13. LOVASTATIN [Concomitant]
     Route: 048
     Dates: start: 19990101
  14. METOPROLOL [Concomitant]
     Indication: DRUG USE FOR UNKNOWN INDICATION
     Route: 065
  15. METOPROLOL [Concomitant]
     Route: 048
     Dates: start: 19990101
  16. ASPIRIN [Concomitant]
     Indication: DRUG USE FOR UNKNOWN INDICATION
     Route: 048
     Dates: start: 19990101
  17. PHENERGAN HCL [Concomitant]
     Indication: DRUG USE FOR UNKNOWN INDICATION
     Route: 048
     Dates: start: 20080101
  18. COMPAZINE [Concomitant]
     Indication: DRUG USE FOR UNKNOWN INDICATION
     Route: 048
     Dates: start: 20090101
  19. MIRALAX [Concomitant]
     Indication: DRUG USE FOR UNKNOWN INDICATION
     Route: 048
     Dates: start: 20090521
  20. NORMAL SALINE [Concomitant]
     Indication: DRUG USE FOR UNKNOWN INDICATION
     Route: 051
     Dates: start: 20090521, end: 20090521
  21. ALOXI [Concomitant]
     Indication: DRUG USE FOR UNKNOWN INDICATION
     Route: 051
     Dates: start: 20090521, end: 20090521
  22. SENOKOT [Concomitant]
     Indication: DRUG USE FOR UNKNOWN INDICATION
     Dosage: 1-2 TABLETS
     Route: 048

REACTIONS (3)
  - GASTROINTESTINAL PERFORATION [None]
  - OBSTRUCTION GASTRIC [None]
  - PANCREATIC CARCINOMA [None]
